FAERS Safety Report 22956364 (Version 2)
Quarter: 2024Q1

REPORT INFORMATION
  Report Type: Spontaneous
  Country: CA (occurrence: CA)
  Receive Date: 20230919
  Receipt Date: 20240302
  Transmission Date: 20240410
  Serious: Yes (Other)
  Sender: FDA-Public Use
  Company Number: CA-CELLTRION INC.-2022CA013215

PATIENT

DRUGS (5)
  1. YUFLYMA [Suspect]
     Active Substance: ADALIMUMAB-AATY
     Indication: Ankylosing spondylitis
     Dosage: 40 MG, 1 EVERY 1 WEEK
     Route: 058
     Dates: start: 20220809
  2. YUFLYMA [Suspect]
     Active Substance: ADALIMUMAB-AATY
     Dosage: YUFLYMA 40 MG WEEKLY SC / 1 EVERY 1 WEEK
     Route: 058
     Dates: start: 20220809
  3. METFORMIN [Concomitant]
     Active Substance: METFORMIN HYDROCHLORIDE
     Indication: Diabetes mellitus
  4. OZEMPIC [Concomitant]
     Active Substance: SEMAGLUTIDE
     Indication: Diabetes mellitus
  5. SEMAGLUTIDE [Concomitant]
     Active Substance: SEMAGLUTIDE
     Indication: Diabetes mellitus

REACTIONS (13)
  - Ankylosing spondylitis [Unknown]
  - Eye irritation [Unknown]
  - Initial insomnia [Unknown]
  - Insurance issue [Unknown]
  - Headache [Unknown]
  - Nausea [Unknown]
  - Arthralgia [Unknown]
  - Fatigue [Unknown]
  - Illness [Unknown]
  - Drug ineffective [Unknown]
  - Off label use [Unknown]
  - Therapy interrupted [Unknown]
  - Off label use [Unknown]
